FAERS Safety Report 7349630-8 (Version None)
Quarter: 2011Q1

REPORT INFORMATION
  Report Type: 
  Country: None (occurrence: None)
  Receive Date: 20110314
  Receipt Date: 20100309
  Transmission Date: 20110831
  Serious: No
  Sender: FDA-Public Use
  Company Number: A0849178A

PATIENT
  Age: 73 Year
  Sex: Male

DRUGS (7)
  1. AUGMENTIN '125' [Suspect]
     Dosage: 500MG THREE TIMES PER DAY
     Dates: start: 20100301
  2. IMODIUM [Concomitant]
     Dates: start: 20100305
  3. METFORMIN [Concomitant]
     Dosage: 500MG TWICE PER DAY
     Dates: start: 20100304
  4. METOPROLOL [Concomitant]
     Dosage: 25MG TWICE PER DAY
     Dates: start: 20100305
  5. LEVOTHYROXINE [Concomitant]
     Dosage: 75MCG PER DAY
     Dates: start: 20100108
  6. ALBUTEROL [Concomitant]
     Dosage: 90MCG TWICE PER DAY
     Dates: start: 20100301
  7. TRAZODONE [Concomitant]
     Dosage: 50MG AT NIGHT
     Dates: start: 20091023

REACTIONS (3)
  - MALAISE [None]
  - INCORRECT ROUTE OF DRUG ADMINISTRATION [None]
  - FEEDING TUBE COMPLICATION [None]
